FAERS Safety Report 7647533-2 (Version None)
Quarter: 2011Q3

REPORT INFORMATION
  Report Type: 
  Country: None (occurrence: None)
  Receive Date: 20110801
  Receipt Date: 20110721
  Transmission Date: 20111222
  Serious: Yes (Disabling)
  Sender: FDA-Public Use
  Company Number: JP-GLAXOSMITHKLINE-B0719816A

PATIENT
  Sex: Female
  Weight: 58 kg

DRUGS (2)
  1. TYKERB [Suspect]
     Indication: BREAST CANCER
     Dosage: 1250MG PER DAY
     Route: 048
     Dates: start: 20110305, end: 20110401
  2. XELODA [Concomitant]
     Dosage: 2400MG PER DAY
     Route: 048
     Dates: start: 20110305, end: 20110401

REACTIONS (1)
  - OEDEMA PERIPHERAL [None]
